FAERS Safety Report 7972124-3 (Version None)
Quarter: 2011Q4

REPORT INFORMATION
  Report Type: 
  Country: None (occurrence: None)
  Receive Date: 20111212
  Receipt Date: 20111201
  Transmission Date: 20120403
  Serious: Yes (Death, Other)
  Sender: FDA-Public Use
  Company Number: US-BAXTER-2011BH037867

PATIENT
  Age: 31 Year
  Sex: Male

DRUGS (1)
  1. HEMOFIL M [Suspect]
     Indication: HAEMOPHILIA
     Route: 042
     Dates: end: 20111001

REACTIONS (2)
  - DEATH [None]
  - HAEMORRHAGE [None]
